FAERS Safety Report 4515144-3 (Version None)
Quarter: 2004Q4

REPORT INFORMATION
  Report Type: 
  Country: None (occurrence: None)
  Receive Date: 20041130
  Receipt Date: 20041130
  Transmission Date: 20050328
  Serious: Yes (Other)
  Sender: FDA-Public Use
  Company Number: None

PATIENT
  Age: 32 Year
  Sex: Male

DRUGS (3)
  1. TOPAMAX [Suspect]
     Indication: MOOD SWINGS
     Dosage: 200MG    BID    ORAL
     Route: 048
     Dates: start: 20031030, end: 20040730
  2. TOPAMAX [Suspect]
     Indication: WEIGHT CONTROL
     Dosage: 200MG    BID    ORAL
     Route: 048
     Dates: start: 20031030, end: 20040730
  3. RISPERDONE [Concomitant]

REACTIONS (6)
  - FLAT AFFECT [None]
  - ILLOGICAL THINKING [None]
  - PARANOIA [None]
  - PSYCHOTIC DISORDER [None]
  - SPEECH DISORDER [None]
  - THINKING ABNORMAL [None]
